FAERS Safety Report 11999089 (Version 1)
Quarter: 2016Q1

REPORT INFORMATION
  Report Type: Spontaneous
  Country: DE (occurrence: DE)
  Receive Date: 20160204
  Receipt Date: 20160204
  Transmission Date: 20160526
  Serious: Yes (Other)
  Sender: FDA-Public Use
  Company Number: DE-ROCHE-1705327

PATIENT
  Age: 90 Year
  Sex: Female

DRUGS (1)
  1. LUCENTIS [Suspect]
     Active Substance: RANIBIZUMAB
     Indication: NEOVASCULAR AGE-RELATED MACULAR DEGENERATION
     Dosage: RIGHT EYE
     Route: 050
     Dates: start: 20130606, end: 20151210

REACTIONS (5)
  - Subretinal fluid [Not Recovered/Not Resolved]
  - Macular fibrosis [Unknown]
  - Detachment of retinal pigment epithelium [Unknown]
  - Drug ineffective [Unknown]
  - Visual acuity tests abnormal [Not Recovered/Not Resolved]

NARRATIVE: CASE EVENT DATE: 20140221
